FAERS Safety Report 4727266-2 (Version None)
Quarter: 2005Q3

REPORT INFORMATION
  Report Type: 
  Country: None (occurrence: None)
  Receive Date: 20050728
  Receipt Date: 20050622
  Transmission Date: 20060218
  Serious: Yes (Life-Threatening)
  Sender: FDA-Public Use
  Company Number: JP-GLAXOSMITHKLINE-B0385509A

PATIENT
  Age: 75 Year
  Sex: Male
  Weight: 69 kg

DRUGS (15)
  1. VALTREX [Suspect]
     Indication: HERPES ZOSTER
     Dosage: 1000MG THREE TIMES PER DAY
     Route: 048
     Dates: start: 20050613, end: 20050619
  2. RHEUMATREX [Suspect]
     Indication: RHEUMATOID ARTHRITIS
     Dosage: 2MG PER DAY
     Route: 048
  3. LOXONIN [Concomitant]
     Indication: HERPES ZOSTER
     Dosage: 180MG PER DAY
     Route: 048
     Dates: start: 20050613, end: 20050620
  4. URSODIOL [Concomitant]
     Indication: HEPATITIS C
     Dosage: 300MG PER DAY
     Route: 048
  5. PROHEPARUM [Concomitant]
     Indication: HEPATITIS C
     Dosage: 2U PER DAY
     Route: 048
  6. NORVASC [Concomitant]
     Indication: HYPERTENSION
     Dosage: 5MG PER DAY
     Route: 048
  7. GASTER D [Concomitant]
     Indication: GASTRIC ULCER
     Dosage: 20MG PER DAY
     Route: 048
     Dates: end: 20050620
  8. MAGLAX [Concomitant]
     Indication: CONSTIPATION
     Dosage: 330MG PER DAY
     Route: 048
     Dates: end: 20050620
  9. FLIVAS [Concomitant]
     Indication: BENIGN PROSTATIC HYPERPLASIA
     Dosage: 25MG PER DAY
     Route: 048
  10. BLADDERON [Concomitant]
     Indication: DYSURIA
     Dosage: 600MG PER DAY
     Route: 048
     Dates: end: 20050620
  11. MUCOSTA [Concomitant]
     Indication: GASTRIC ULCER
     Dosage: 300MG PER DAY
     Route: 048
  12. MYONAL [Concomitant]
     Indication: MUSCLE TIGHTNESS
     Dosage: 150MG PER DAY
     Route: 048
  13. ANPLAG [Concomitant]
     Indication: ARTERIAL OCCLUSIVE DISEASE
     Dosage: 300MG PER DAY
     Route: 048
  14. CYANOCOBALAMIN [Concomitant]
     Indication: HERPES ZOSTER
     Dosage: 1500MCG PER DAY
     Route: 048
     Dates: start: 20050613
  15. TOPALGIC [Concomitant]
     Indication: HERPES ZOSTER
     Route: 061
     Dates: start: 20050613

REACTIONS (6)
  - DECREASED ACTIVITY [None]
  - DEPRESSED LEVEL OF CONSCIOUSNESS [None]
  - DYSARTHRIA [None]
  - FAECAL INCONTINENCE [None]
  - RENAL FAILURE ACUTE [None]
  - URINE OUTPUT DECREASED [None]
